FAERS Safety Report 5516805-X (Version None)
Quarter: 2007Q4

REPORT INFORMATION
  Report Type: 
  Country: None (occurrence: None)
  Receive Date: 20071114
  Receipt Date: 20071106
  Transmission Date: 20080405
  Serious: Yes (Hospitalization, Other)
  Sender: FDA-Public Use
  Company Number: NO-JNJFOC-20071005280

PATIENT
  Sex: Male

DRUGS (8)
  1. REMICADE [Suspect]
     Route: 042
  2. REMICADE [Suspect]
     Indication: CROHN'S DISEASE
     Route: 042
  3. NUELIN [Concomitant]
  4. CALCIGRAN FORTE [Concomitant]
  5. IMUREL [Concomitant]
     Indication: CROHN'S DISEASE
  6. BRICANYL [Concomitant]
  7. THEO-DUR [Concomitant]
  8. SALMETEROL [Concomitant]

REACTIONS (1)
  - TUBERCULOSIS [None]
